FAERS Safety Report 14632016 (Version 1)
Quarter: 2018Q1

REPORT INFORMATION
  Report Type: Spontaneous
  Country: US (occurrence: US)
  Receive Date: 20180313
  Receipt Date: 20180313
  Transmission Date: 20180509
  Serious: Yes (Other)
  Sender: FDA-Public Use
  Company Number: US-PFIZER INC-2018095001

PATIENT
  Age: 71 Year
  Sex: Female
  Weight: 53.61 kg

DRUGS (4)
  1. XANAX [Concomitant]
     Active Substance: ALPRAZOLAM
     Dosage: 0.5 MG, AS NEEDED [TWICE DAILY BY MOUTH AS NEEDED]
     Route: 048
     Dates: start: 20170201
  2. ESCITALOPRAM [Concomitant]
     Active Substance: ESCITALOPRAM OXALATE
     Indication: DEPRESSION
     Dosage: 10 MG, 1X/DAY [ONCE DAILY BY MOUTH IN THE MORNING]
     Route: 048
     Dates: start: 2017
  3. PREMPRO [Suspect]
     Active Substance: ESTROGENS, CONJUGATED\MEDROXYPROGESTERONE ACETATE
     Indication: HOT FLUSH
     Dosage: UNK
     Dates: end: 201707
  4. XANAX [Concomitant]
     Active Substance: ALPRAZOLAM
     Indication: ANXIETY
     Dosage: 0.25 MG, UNK
     Route: 048

REACTIONS (11)
  - Chills [Unknown]
  - Head discomfort [Unknown]
  - Disturbance in attention [Unknown]
  - Amnesia [Unknown]
  - Weight decreased [Unknown]
  - Major depression [Unknown]
  - Anxiety [Unknown]
  - Condition aggravated [Unknown]
  - Condition aggravated [Unknown]
  - Decreased appetite [Unknown]
  - Middle insomnia [Unknown]

NARRATIVE: CASE EVENT DATE: 201802
